FAERS Safety Report 6581552-2 (Version None)
Quarter: 2010Q1

REPORT INFORMATION
  Report Type: 
  Country: None (occurrence: None)
  Receive Date: 20100203
  Receipt Date: 20100122
  Transmission Date: 20100710
  Serious: Yes (Hospitalization, Other)
  Sender: FDA-Public Use
  Company Number: A-CH2009-24536

PATIENT
  Age: 34 Year
  Sex: Female
  Weight: 53 kg

DRUGS (3)
  1. TRACLEER            ( BOSENTAN 62.5MG-) [Suspect]
     Indication: SKIN ULCER
     Dosage: 62.5 MG, BID, ORAL, 62.5 MG, BID, ORAL
     Route: 048
     Dates: start: 20080918, end: 20081007
  2. TRACLEER            ( BOSENTAN 62.5MG-) [Suspect]
     Indication: SKIN ULCER
     Dosage: 62.5 MG, BID, ORAL, 62.5 MG, BID, ORAL
     Route: 048
     Dates: start: 20081021, end: 20090218
  3. PREDNISOLONE [Concomitant]

REACTIONS (17)
  - ACUTE PHASE REACTION [None]
  - ASPARTATE AMINOTRANSFERASE INCREASED [None]
  - BACK PAIN [None]
  - BLOOD CREATINE PHOSPHOKINASE INCREASED [None]
  - BLOOD HOMOCYSTEINE INCREASED [None]
  - BLOOD LACTATE DEHYDROGENASE INCREASED [None]
  - C-REACTIVE PROTEIN INCREASED [None]
  - CAVERNOUS SINUS THROMBOSIS [None]
  - COAGULATION FACTOR VIII LEVEL INCREASED [None]
  - DENTAL CARE [None]
  - DIZZINESS [None]
  - FACE INJURY [None]
  - HEAD INJURY [None]
  - PARAESTHESIA [None]
  - RED BLOOD CELL SEDIMENTATION RATE INCREASED [None]
  - VASCULITIS [None]
  - VIRAL INFECTION [None]
